FAERS Safety Report 19659788 (Version 1)
Quarter: 2021Q3

REPORT INFORMATION
  Report Type: Spontaneous
  Country: CN (occurrence: CN)
  Receive Date: 20210805
  Receipt Date: 20210805
  Transmission Date: 20211014
  Serious: Yes (Other)
  Sender: FDA-Public Use
  Company Number: CN-009507513-2108CHN000069

PATIENT
  Age: 74 Year
  Sex: Female
  Weight: 41.5 kg

DRUGS (2)
  1. INVANZ [Suspect]
     Active Substance: ERTAPENEM SODIUM
     Indication: URINARY TRACT INFECTION
     Dosage: 1 G, QD
     Route: 041
     Dates: start: 20210709, end: 20210716
  2. SODIUM CHLORIDE. [Concomitant]
     Active Substance: SODIUM CHLORIDE
     Indication: MEDICATION DILUTION
     Dosage: 100 ML, QD
     Route: 041
     Dates: start: 20210709, end: 20210716

REACTIONS (6)
  - Cerebral atrophy [Unknown]
  - Restlessness [Recovering/Resolving]
  - Disorganised speech [Recovering/Resolving]
  - White matter lesion [Unknown]
  - Magnetic resonance imaging head abnormal [Unknown]
  - Mental disorder [Recovering/Resolving]

NARRATIVE: CASE EVENT DATE: 202107
